FAERS Safety Report 9732300 (Version 1)
Quarter: 2013Q4

REPORT INFORMATION
  Report Type: Spontaneous
  Country: US (occurrence: None)
  Receive Date: 20131204
  Receipt Date: 20131204
  Transmission Date: 20140711
  Serious: No
  Sender: FDA-Public Use
  Company Number: None

PATIENT
  Sex: Male

DRUGS (1)
  1. HUMIRA [Suspect]
     Indication: PSORIASIS
     Dosage: 40 MG EVERY 2 WEEKS SUBCUTANEOUSLY
     Route: 058
     Dates: start: 201309

REACTIONS (2)
  - Alopecia [None]
  - Madarosis [None]
